FAERS Safety Report 7879950-X (Version None)
Quarter: 2011Q4

REPORT INFORMATION
  Report Type: 
  Country: None (occurrence: None)
  Receive Date: 20111101
  Receipt Date: 20111026
  Transmission Date: 20120403
  Serious: Yes (Hospitalization)
  Sender: FDA-Public Use
  Company Number: FR-PURDUE-GBR-2011-0008988

PATIENT
  Sex: Male

DRUGS (8)
  1. OXYCONTIN [Suspect]
     Indication: PAIN
     Dosage: UNK
     Route: 048
     Dates: start: 20100804, end: 20100807
  2. NEXIUM [Concomitant]
  3. DUPHALAC [Concomitant]
  4. ARIXTRA [Concomitant]
  5. PHOSPHONEUROS [Concomitant]
  6. ACETAMINOPHEN [Concomitant]
  7. AVLOCARDYL                         /00030001/ [Concomitant]
  8. LANTUS [Concomitant]

REACTIONS (1)
  - HEPATIC ENCEPHALOPATHY [None]
